FAERS Safety Report 5005621-3 (Version None)
Quarter: 2006Q2

REPORT INFORMATION
  Report Type: 
  Country: None (occurrence: None)
  Receive Date: 20060517
  Receipt Date: 20060517
  Transmission Date: 20061013
  Serious: Yes (Other)
  Sender: FDA-Public Use
  Company Number: None

PATIENT
  Age: 33 Year
  Sex: Male
  Weight: 54.4316 kg

DRUGS (2)
  1. KLONOPIN [Suspect]
     Indication: ANXIETY DISORDER
     Dosage: -0.5-    1X/DAY  OTHER
     Route: 050
     Dates: start: 19951030, end: 19951130
  2. KLONOPIN [Suspect]
     Indication: PANIC DISORDER
     Dosage: -0.5-    1X/DAY  OTHER
     Route: 050
     Dates: start: 19951030, end: 19951130

REACTIONS (5)
  - DRUG DOSE OMISSION [None]
  - EAR DISCOMFORT [None]
  - PALPITATIONS [None]
  - TINNITUS [None]
  - TREATMENT NONCOMPLIANCE [None]
